FAERS Safety Report 8456830-2 (Version None)
Quarter: 2012Q2

REPORT INFORMATION
  Report Type: 
  Country: None (occurrence: None)
  Receive Date: 20120621
  Receipt Date: 20120618
  Transmission Date: 20120825
  Serious: No
  Sender: FDA-Public Use
  Company Number: US-PFIZER INC-2012147034

PATIENT
  Sex: Female
  Weight: 68.934 kg

DRUGS (6)
  1. CHANTIX [Suspect]
     Dosage: 1 MG, 2X/DAY
     Route: 048
     Dates: start: 20120601
  2. HYZAAR [Concomitant]
     Indication: HYPERTENSION
     Dosage: 100/25 MG, UNK
  3. CHANTIX [Suspect]
     Indication: SMOKING CESSATION THERAPY
     Dosage: 0.5 MG, 1X/DAY
     Route: 048
     Dates: start: 20120602, end: 20120601
  4. ATENOLOL [Concomitant]
     Indication: HYPERTENSION
     Dosage: 50 MG, UNK
  5. ASPIRIN [Concomitant]
     Dosage: UNK
  6. LIPITOR [Concomitant]
     Indication: BLOOD CHOLESTEROL INCREASED
     Dosage: UNK

REACTIONS (2)
  - BLOOD PRESSURE ABNORMAL [None]
  - DIZZINESS [None]
